FAERS Safety Report 9488490 (Version 5)
Quarter: 2013Q4

REPORT INFORMATION
  Report Type: Spontaneous
  Country: JP (occurrence: JP)
  Receive Date: 20130829
  Receipt Date: 20131122
  Transmission Date: 20140711
  Serious: Yes (Life-Threatening, Hospitalization, Other)
  Sender: FDA-Public Use
  Company Number: JP-B.I. PHARMACEUTICALS,INC./RIDGEFIELD-2013-BI-05958NB

PATIENT
  Age: 75 Year
  Sex: Female
  Weight: 51 kg

DRUGS (16)
  1. MIRAPEX LA [Suspect]
     Indication: PARKINSON^S DISEASE
     Dosage: 0.375 MG
     Route: 048
     Dates: start: 20120608, end: 20120621
  2. MIRAPEX LA [Suspect]
     Dosage: 0.75 MG
     Route: 048
     Dates: start: 20120622, end: 20120705
  3. MIRAPEX LA [Suspect]
     Dosage: 0.375 MG
     Route: 048
     Dates: start: 20120706, end: 20120731
  4. MIRAPEX LA [Suspect]
     Dosage: 0.75 MG
     Route: 048
     Dates: start: 20120801, end: 20121025
  5. MIRAPEX LA [Suspect]
     Dosage: 1.125 MG
     Route: 048
     Dates: start: 20121026, end: 20121129
  6. MIRAPEX LA [Suspect]
     Dosage: 1.5 MG
     Route: 048
     Dates: start: 20121130, end: 20130106
  7. PLAVIX / CLOPIDOGREL SULFATE [Concomitant]
     Indication: ANTIPLATELET THERAPY
     Dosage: 75 MG
     Route: 048
     Dates: start: 20120608
  8. CERCINE / DIAZEPAM [Concomitant]
     Dosage: 2 MG
     Route: 048
  9. ADALAT-CR / NIFEDIPINE [Concomitant]
     Dosage: 40 MG
     Route: 048
  10. ACETANOL / ACEBUTOLOL HYDROCHLORIDE [Concomitant]
     Dosage: 200 MG
     Route: 048
  11. AMLODIN / AMLODIPINE BESILATE [Concomitant]
     Dosage: 5 MG
     Route: 048
  12. LOCHOL / FLUVASTATIN SODIUM [Concomitant]
     Dosage: 30 MG
     Route: 048
  13. OMEPRAL / OMEPRAZOLE [Concomitant]
     Dosage: 10 MG
     Route: 048
  14. ALTAT / ROXATIDINE ACETATE HYDROCHLORIDE [Concomitant]
     Dosage: 75 MG
     Route: 048
  15. BI_SIFROL / PRAMIPEXOLE HYDROCHLORIDE HYDRATE [Concomitant]
     Route: 065
  16. HYPEN / ETODOLAC [Concomitant]
     Route: 065

REACTIONS (4)
  - Atrioventricular block complete [Recovered/Resolved]
  - Cardiac failure congestive [Recovered/Resolved]
  - Renal cancer [Unknown]
  - Somnolence [Recovered/Resolved]
